FAERS Safety Report 14178839 (Version 2)
Quarter: 2017Q4

REPORT INFORMATION
  Report Type: Spontaneous
  Country: JP (occurrence: JP)
  Receive Date: 20171110
  Receipt Date: 20171212
  Transmission Date: 20180321
  Serious: Yes (Hospitalization, Other)
  Sender: FDA-Public Use
  Company Number: JP-009507513-1711JPN000650J

PATIENT
  Age: 87 Year
  Sex: Female
  Weight: 52 kg

DRUGS (7)
  1. BESACOLIN [Concomitant]
     Active Substance: BETHANECHOL CHLORIDE
     Indication: NEUROGENIC BLADDER
     Dosage: 1 G, QD
     Route: 048
     Dates: start: 20121127, end: 20171111
  2. NORVASC [Concomitant]
     Active Substance: AMLODIPINE BESYLATE
     Indication: HYPERTENSION
     Dosage: 5 MG, QD
     Route: 048
     Dates: start: 20110816
  3. MENESIT TABLETS - 100 [Suspect]
     Active Substance: CARBIDOPA\LEVODOPA
     Indication: PARKINSON^S DISEASE
     Dosage: 100 MG, BID
     Route: 048
     Dates: start: 20170713, end: 201710
  4. EBRANTIL [Concomitant]
     Active Substance: URAPIDIL
     Indication: NEUROGENIC BLADDER
     Dosage: 15 MG, BID
     Route: 048
     Dates: start: 20121127
  5. MENESIT TABLETS - 100 [Suspect]
     Active Substance: CARBIDOPA\LEVODOPA
     Dosage: UNK, DOUBLING OF INITIAL DOSE
     Route: 048
     Dates: start: 201710
  6. MENESIT TABLETS - 100 [Suspect]
     Active Substance: CARBIDOPA\LEVODOPA
     Dosage: DOSE DECREASED
     Route: 048
     Dates: start: 2017
  7. EPADEL [Concomitant]
     Active Substance: ICOSAPENT
     Dosage: 900 MG, BID
     Route: 048
     Dates: start: 20110816, end: 20171111

REACTIONS (1)
  - Colitis ulcerative [Not Recovered/Not Resolved]

NARRATIVE: CASE EVENT DATE: 201709
